FAERS Safety Report 6149111-3 (Version None)
Quarter: 2009Q2

REPORT INFORMATION
  Report Type: 
  Country: None (occurrence: None)
  Receive Date: 20090409
  Receipt Date: 20090330
  Transmission Date: 20091009
  Serious: Yes (Other)
  Sender: FDA-Public Use
  Company Number: PHNR2005AU01742

PATIENT
  Sex: Male

DRUGS (3)
  1. CLOZARIL [Suspect]
     Indication: SCHIZOPHRENIA
     Dosage: 0 - 800 MG/DAY
     Dates: start: 19950103, end: 20051122
  2. RISPERIDONE [Concomitant]
  3. KARVEA [Concomitant]

REACTIONS (22)
  - AORTIC ARTERIOSCLEROSIS [None]
  - CARDIAC DISORDER [None]
  - CARDIOMYOPATHY [None]
  - CORONARY ARTERY DISEASE [None]
  - DIASTOLIC DYSFUNCTION [None]
  - DILATATION ATRIAL [None]
  - DILATATION VENTRICULAR [None]
  - DRUG INEFFECTIVE [None]
  - ECHOCARDIOGRAM ABNORMAL [None]
  - EJECTION FRACTION ABNORMAL [None]
  - ELECTROCARDIOGRAM CHANGE [None]
  - ELECTROCARDIOGRAM ST SEGMENT ABNORMAL [None]
  - ENZYME ABNORMALITY [None]
  - EXERCISE ELECTROCARDIOGRAM ABNORMAL [None]
  - LEFT ATRIAL DILATATION [None]
  - LEFT VENTRICULAR DYSFUNCTION [None]
  - LEFT VENTRICULAR HYPERTROPHY [None]
  - MITRAL VALVE INCOMPETENCE [None]
  - ORTHOSTATIC HYPOTENSION [None]
  - REFUSAL OF TREATMENT BY PATIENT [None]
  - SCAN MYOCARDIAL PERFUSION ABNORMAL [None]
  - SYNCOPE [None]
